FAERS Safety Report 6623958-9 (Version None)
Quarter: 2010Q1

REPORT INFORMATION
  Report Type: 
  Country: None (occurrence: None)
  Receive Date: 20100305
  Receipt Date: 20100222
  Transmission Date: 20100710
  Serious: Yes (Death)
  Sender: FDA-Public Use
  Company Number: 008911

PATIENT
  Age: 72 Year
  Sex: Male

DRUGS (4)
  1. SAMSCA [Suspect]
     Indication: INAPPROPRIATE ANTIDIURETIC HORMONE SECRETION
     Dosage: 15 MG, DAILY DOSE, ORAL
     Route: 048
     Dates: start: 20100204, end: 20100207
  2. DEXAMETHASONE TAB [Concomitant]
  3. PANTOPRAZOLE SODIUM [Concomitant]
  4. ENOXAPARIN SODIUM [Concomitant]

REACTIONS (3)
  - BRONCHIAL CARCINOMA [None]
  - HEPATIC FAILURE [None]
  - MALIGNANT NEOPLASM PROGRESSION [None]
